FAERS Safety Report 6894539-7 (Version None)
Quarter: 2010Q3

REPORT INFORMATION
  Report Type: 
  Country: None (occurrence: None)
  Receive Date: 20100802
  Receipt Date: 20100720
  Transmission Date: 20110219
  Serious: Yes (Hospitalization, Other)
  Sender: FDA-Public Use
  Company Number: ES-PFIZER INC-2010080299

PATIENT
  Age: 25 Year
  Sex: Male

DRUGS (2)
  1. SULFASALAZINE [Suspect]
     Dosage: UNK
  2. INDOMETHACIN [Concomitant]
     Dosage: 25 MG, 3X/DAY
     Route: 048

REACTIONS (1)
  - HISTIOCYTOSIS HAEMATOPHAGIC [None]
